FAERS Safety Report 7715732-7 (Version None)
Quarter: 2011Q3

REPORT INFORMATION
  Report Type: 
  Country: None (occurrence: None)
  Receive Date: 20110829
  Receipt Date: 20110823
  Transmission Date: 20111222
  Serious: Yes (Other)
  Sender: FDA-Public Use
  Company Number: CL-PFIZER INC-2011196449

PATIENT
  Age: 3 Year
  Sex: Female

DRUGS (1)
  1. ANIDULAFUNGIN [Suspect]
     Dosage: UNK
     Dates: start: 20110301

REACTIONS (1)
  - HYPOGLYCAEMIA [None]
